FAERS Safety Report 7018547-0 (Version None)
Quarter: 2010Q3

REPORT INFORMATION
  Report Type: 
  Country: None (occurrence: None)
  Receive Date: 20100928
  Receipt Date: 20100920
  Transmission Date: 20110219
  Serious: Yes (Other)
  Sender: FDA-Public Use
  Company Number: ES-ABBOTT-10P-144-0671733-00

PATIENT
  Age: 37 Year
  Sex: Female

DRUGS (4)
  1. HUMIRA [Suspect]
     Indication: RHEUMATOID ARTHRITIS
     Route: 058
     Dates: start: 20090508, end: 20100121
  2. METHOTREXATE [Concomitant]
     Indication: RHEUMATOID ARTHRITIS
     Route: 048
     Dates: start: 20090225, end: 20090618
  3. METHOTREXATE [Concomitant]
     Route: 048
     Dates: start: 20090618, end: 20091023
  4. METHOTREXATE [Concomitant]
     Route: 058
     Dates: start: 20091023, end: 20091023

REACTIONS (3)
  - DRUG INEFFECTIVE [None]
  - SJOGREN'S SYNDROME [None]
  - ULCERATIVE KERATITIS [None]
